FAERS Safety Report 9403098 (Version 1)
Quarter: 2013Q3

REPORT INFORMATION
  Report Type: Spontaneous
  Country: US (occurrence: None)
  Receive Date: 20130712
  Receipt Date: 20130712
  Transmission Date: 20140515
  Serious: Yes (Hospitalization)
  Sender: FDA-Public Use
  Company Number: SYM-2013-03800

PATIENT
  Age: 57 Year
  Sex: Male
  Weight: 38.56 kg

DRUGS (3)
  1. MYSOLINE [Suspect]
     Indication: CONVULSION
     Dosage: VIA FEEDING TUBE, QAM
     Route: 048
     Dates: start: 1974
  2. KEPPRA (LEVETIRACETAM ) (LEVETIRACETAM) [Concomitant]
  3. MOTRIN (IBUPROFEN) (IBUPROFEN) [Concomitant]

REACTIONS (9)
  - Fall [None]
  - Subdural haematoma [None]
  - Pneumonia aspiration [None]
  - Wrong technique in drug usage process [None]
  - Convulsion [None]
  - Grand mal convulsion [None]
  - Weight decreased [None]
  - Personality change [None]
  - Drug level below therapeutic [None]
